FAERS Safety Report 4634251-8 (Version None)
Quarter: 2005Q2

REPORT INFORMATION
  Report Type: 
  Country: None (occurrence: None)
  Receive Date: 20050413
  Receipt Date: 20050405
  Transmission Date: 20051028
  Serious: Yes (Hospitalization)
  Sender: FDA-Public Use
  Company Number: PHEH2005US04019

PATIENT
  Age: 84 Year
  Sex: Male

DRUGS (5)
  1. EXELON [Suspect]
     Indication: DEMENTIA ALZHEIMER'S TYPE
     Dosage: 6 MG, BID
     Dates: start: 20040131
  2. CARBAMAZEPINE [Concomitant]
     Indication: CONVULSION
  3. ZOLOFT [Concomitant]
     Indication: ANXIETY
  4. LOTREL [Concomitant]
     Indication: HYPERTENSION
  5. ZETIA [Concomitant]
     Indication: BLOOD CHOLESTEROL INCREASED

REACTIONS (8)
  - ASTHENIA [None]
  - BLOOD SODIUM DECREASED [None]
  - HEART RATE DECREASED [None]
  - HYPERHIDROSIS [None]
  - NAUSEA [None]
  - PNEUMONIA [None]
  - VENTRICULAR TACHYCARDIA [None]
  - WHITE BLOOD CELL COUNT DECREASED [None]
